FAERS Safety Report 4888427-5 (Version None)
Quarter: 2006Q1

REPORT INFORMATION
  Report Type: 
  Country: None (occurrence: None)
  Receive Date: 20060119
  Receipt Date: 20060113
  Transmission Date: 20060701
  Serious: Yes (Hospitalization, Other)
  Sender: FDA-Public Use
  Company Number: US-2005-019485

PATIENT
  Age: 52 Year
  Sex: Female
  Weight: 86.2 kg

DRUGS (1)
  1. BETASERON [Suspect]
     Indication: MULTIPLE SCLEROSIS
     Dosage: 8 MIU, EVERY 2D, SUBCUTANEOUS
     Route: 058
     Dates: start: 20050620, end: 20050823

REACTIONS (15)
  - ANOREXIA [None]
  - BLOOD GLUCOSE DECREASED [None]
  - BLOOD URINE PRESENT [None]
  - CARDIAC FAILURE CONGESTIVE [None]
  - DIABETES MELLITUS [None]
  - HEART RATE DECREASED [None]
  - HYPOTHYROIDISM [None]
  - LOSS OF CONSCIOUSNESS [None]
  - MALIGNANT HYPERTENSION [None]
  - MENSTRUAL DISORDER [None]
  - PANCYTOPENIA [None]
  - RENAL DISORDER [None]
  - VISION BLURRED [None]
  - WEIGHT DECREASED [None]
  - WEIGHT INCREASED [None]
